FAERS Safety Report 20438201 (Version 2)
Quarter: 2022Q1

REPORT INFORMATION
  Report Type: Report from Study
  Country: US (occurrence: US)
  Receive Date: 20220207
  Receipt Date: 20220321
  Transmission Date: 20220423
  Serious: Yes (Other)
  Sender: FDA-Public Use
  Company Number: US-MYLANLABS-2022M1010223

PATIENT
  Age: 28 Year
  Sex: Male
  Weight: 106.41 kg

DRUGS (2)
  1. CLOZAPINE [Suspect]
     Active Substance: CLOZAPINE
     Indication: Product used for unknown indication
     Dosage: 400 MILLIGRAM, QD (100 MG 4 TAB 1.5 IN AM, 2.5 IN PM)
  2. CLOZAPINE [Suspect]
     Active Substance: CLOZAPINE
     Dosage: 300 MILLIGRAM, QD (100 MG 3 TABS DAILY, 1 TAB IN THE AM, 2 AT BEDTIME)

REACTIONS (3)
  - Neutropenia [Unknown]
  - White blood cell count increased [Unknown]
  - Neutrophil count increased [Unknown]

NARRATIVE: CASE EVENT DATE: 20220120
